FAERS Safety Report 8532331-8 (Version None)
Quarter: 2012Q3

REPORT INFORMATION
  Report Type: 
  Country: None (occurrence: None)
  Receive Date: 20120724
  Receipt Date: 20120713
  Transmission Date: 20120928
  Serious: Yes (Hospitalization)
  Sender: FDA-Public Use
  Company Number: US-BIOGENIDEC-2012BI021892

PATIENT
  Age: 42 Year
  Sex: Female

DRUGS (3)
  1. AMBIEN [Concomitant]
     Indication: SLEEP DISORDER
  2. TYSABRI [Suspect]
     Indication: MULTIPLE SCLEROSIS
     Route: 042
     Dates: start: 20110420, end: 20120502
  3. AVONEX [Concomitant]
     Indication: MULTIPLE SCLEROSIS
     Route: 030
     Dates: start: 20071112

REACTIONS (3)
  - ANASTOMOTIC ULCER [None]
  - HAEMORRHAGIC ANAEMIA [None]
  - MULTIPLE SCLEROSIS [None]
